FAERS Safety Report 5626692-7 (Version None)
Quarter: 2008Q1

REPORT INFORMATION
  Report Type: 
  Country: None (occurrence: None)
  Receive Date: 20080214
  Receipt Date: 20080204
  Transmission Date: 20080703
  Serious: Yes (Other)
  Sender: FDA-Public Use
  Company Number: FR-PFIZER INC-2008011530

PATIENT
  Sex: Male
  Weight: 96 kg

DRUGS (1)
  1. TAHOR [Suspect]
     Route: 048
     Dates: start: 20071101, end: 20080101

REACTIONS (1)
  - MUSCLE INJURY [None]
